FAERS Safety Report 15603291 (Version 1)
Quarter: 2018Q4

REPORT INFORMATION
  Report Type: Spontaneous
  Country: CN (occurrence: CN)
  Receive Date: 20181109
  Receipt Date: 20181109
  Transmission Date: 20190205
  Serious: Yes (Life-Threatening)
  Sender: FDA-Public Use
  Company Number: CN-FRESENIUS KABI-FK201811467

PATIENT
  Age: 72 Year
  Sex: Female

DRUGS (2)
  1. LIPOVENOES MCT 20% [Suspect]
     Active Substance: EGG PHOSPHOLIPIDS\GLYCERIN\MEDIUM-CHAIN TRIGLYCERIDES\SOYBEAN OIL
     Indication: NUTRITIONAL SUPPLEMENTATION
     Dosage: 250ML/QD
     Route: 042
     Dates: start: 20180920, end: 20180920
  2. CYSTEINE/GLYCINE/ALANINE/SERINE/ASPARTIC ACID/TYROSINE/LEUCINE/METHIONINE/PHENYLALANINE/VALINE/THREO [Suspect]
     Active Substance: ALANINE\ARGININE\CYSTEINE HYDROCHLORIDE\GLYCINE\HISTIDINE\ISOLEUCINE\LEUCINE\LYSINE ACETATE\METHIONINE\PHENYLALANINE\PROLINE\SERINE\THREONINE\TRYPTOPHAN\VALINE
     Indication: NUTRITIONAL SUPPLEMENTATION
     Dosage: 250ML/QD
     Route: 042
     Dates: start: 20180920, end: 20180920

REACTIONS (3)
  - Hypersensitivity [Recovering/Resolving]
  - Chills [Recovering/Resolving]
  - Pyrexia [Recovering/Resolving]

NARRATIVE: CASE EVENT DATE: 20180920
